FAERS Safety Report 6596860-9 (Version None)
Quarter: 2010Q1

REPORT INFORMATION
  Report Type: 
  Country: None (occurrence: None)
  Receive Date: 20100212
  Receipt Date: 20090713
  Transmission Date: 20100710
  Serious: No
  Sender: FDA-Public Use
  Company Number: 2009-00556

PATIENT
  Age: 41 Year
  Sex: Female
  Weight: 113.3993 kg

DRUGS (2)
  1. ZICAM COLD REMEDY NASAL GEL SWABS [Suspect]
     Indication: SINUSITIS
     Dosage: QID, 1 MONTH
     Dates: start: 20090428, end: 20090509
  2. ZICAM ALLERGY RELIEF GEL SWABS [Suspect]
     Dosage: QID, 1 MONTH
     Dates: start: 20090428, end: 20090509

REACTIONS (2)
  - AGEUSIA [None]
  - ANOSMIA [None]
